FAERS Safety Report 9491333 (Version 1)
Quarter: 2013Q1

REPORT INFORMATION
  Report Type: Not Available
  Country: US (occurrence: US)
  Receive Date: 20120619
  Receipt Date: 20120619
  Transmission Date: 20140127
  Serious: Yes (Other)
  Sender: FDA-Public Use
  Company Number: US-LUNDBECK-DKLU1079601

PATIENT
  Sex: Male

DRUGS (2)
  1. SABRIL     (TABLET) [Suspect]
     Indication: INFANTILE SPASMS
     Dates: start: 2009, end: 2009
  2. SABRIL     (TABLET) [Suspect]
     Route: 048
     Dates: start: 201201

REACTIONS (2)
  - Convulsion [Unknown]
  - Irritability [Unknown]
